FAERS Safety Report 4460162-7 (Version None)
Quarter: 2004Q3

REPORT INFORMATION
  Report Type: 
  Country: None (occurrence: None)
  Receive Date: 20040928
  Receipt Date: 20040109
  Transmission Date: 20050211
  Serious: No
  Sender: FDA-Public Use
  Company Number: US-GLAXOSMITHKLINE-A0492268A

PATIENT
  Age: 72 Year
  Sex: Male

DRUGS (9)
  1. SEREVENT [Suspect]
     Dosage: 1PUFF TWICE PER DAY
     Route: 055
     Dates: start: 20031101
  2. COMBIVENT [Concomitant]
  3. FLOVENT [Concomitant]
  4. SINGULAIR [Concomitant]
  5. ATROVENT [Concomitant]
  6. NASACORT [Concomitant]
  7. CELEBREX [Concomitant]
  8. TYLENOL [Concomitant]
  9. CLARINEX [Concomitant]

REACTIONS (2)
  - COUGH [None]
  - DRUG INEFFECTIVE [None]
